FAERS Safety Report 17802399 (Version 1)
Quarter: 2020Q3

REPORT INFORMATION
  Report Type: Report from Study
  Country: BR (occurrence: BR)
  Receive Date: 20200519
  Receipt Date: 20200519
  Transmission Date: 20201104
  Serious: Yes (Other)
  Sender: FDA-Public Use
  Company Number: PHHY2019BR014071

PATIENT
  Sex: Female
  Weight: 58 kg

DRUGS (6)
  1. XOLAIR [Suspect]
     Active Substance: OMALIZUMAB
     Indication: URTICARIA
     Dosage: 300 MG, QMO
     Route: 058
     Dates: start: 20190115
  2. XOLAIR [Suspect]
     Active Substance: OMALIZUMAB
     Dosage: 300 MG, QMO
     Route: 058
     Dates: start: 20190408
  3. XOLAIR [Suspect]
     Active Substance: OMALIZUMAB
     Dosage: 300 MG, QMO
     Route: 058
     Dates: start: 201907
  4. XOLAIR [Suspect]
     Active Substance: OMALIZUMAB
     Dosage: 300 MG, QMO
     Route: 058
     Dates: start: 20190809
  5. CYCLOSPORINE. [Suspect]
     Active Substance: CYCLOSPORINE
     Indication: PRODUCT USED FOR UNKNOWN INDICATION
     Dosage: UNK
     Route: 065
  6. XOLAIR [Suspect]
     Active Substance: OMALIZUMAB
     Dosage: 300 MG, QMO
     Route: 058
     Dates: start: 20190508

REACTIONS (11)
  - Pruritus [Unknown]
  - Hypersensitivity [Unknown]
  - Chills [Recovering/Resolving]
  - Hyperhidrosis [Not Recovered/Not Resolved]
  - Feeling cold [Recovering/Resolving]
  - Swelling [Not Recovered/Not Resolved]
  - Colitis [Not Recovered/Not Resolved]
  - Autoimmune disorder [Unknown]
  - Drug resistance [Unknown]
  - Urticaria [Not Recovered/Not Resolved]
  - Drug ineffective [Unknown]
